FAERS Safety Report 17552558 (Version 3)
Quarter: 2020Q2

REPORT INFORMATION
  Report Type: Spontaneous
  Country: US (occurrence: US)
  Receive Date: 20200317
  Receipt Date: 20200406
  Transmission Date: 20200713
  Serious: Yes (Other)
  Sender: FDA-Public Use
  Company Number: US-ASTRAZENECA-2020SE36022

PATIENT
  Age: 1934 Week
  Sex: Male
  Weight: 154.2 kg

DRUGS (1)
  1. FASENRA [Suspect]
     Active Substance: BENRALIZUMAB
     Indication: ASTHMA
     Dosage: 30.0MG UNKNOWN
     Route: 058
     Dates: start: 20191112, end: 20200221

REACTIONS (3)
  - Inappropriate schedule of product administration [Unknown]
  - Pharyngitis [Unknown]
  - Product distribution issue [Unknown]
